FAERS Safety Report 4684305-5 (Version None)
Quarter: 2005Q2

REPORT INFORMATION
  Report Type: 
  Country: None (occurrence: None)
  Receive Date: 20050531
  Receipt Date: 20050425
  Transmission Date: 20051028
  Serious: Yes (Hospitalization, Other)
  Sender: FDA-Public Use
  Company Number: USA041079827

PATIENT
  Age: 24 Year
  Sex: Female
  Weight: 88 kg

DRUGS (5)
  1. ZYPREXA [Suspect]
     Indication: BIPOLAR DISORDER
     Dosage: 20 MG DAY
     Dates: start: 20040701
  2. ULTRAN (PHENAGLYCODOL) [Concomitant]
  3. PAXIL CR [Concomitant]
  4. ATIVAN [Concomitant]
  5. ADVAIR DISKUS 100/50 [Concomitant]

REACTIONS (5)
  - ALANINE AMINOTRANSFERASE INCREASED [None]
  - ASPARTATE AMINOTRANSFERASE INCREASED [None]
  - BLOOD CREATINE PHOSPHOKINASE INCREASED [None]
  - MUSCLE RIGIDITY [None]
  - MYALGIA [None]
